FAERS Safety Report 8572559-4 (Version None)
Quarter: 2012Q2

REPORT INFORMATION
  Report Type: 
  Country: None (occurrence: None)
  Receive Date: 20120423
  Receipt Date: 20100419
  Transmission Date: 20120825
  Serious: Yes (Other)
  Sender: FDA-Public Use
  Company Number: PHEH2010US03127

PATIENT
  Age: 3 Year
  Sex: Male
  Weight: 12.8 kg

DRUGS (4)
  1. EXJADE [Suspect]
     Indication: THALASSAEMIA
     Dosage: 250 MG DAILY, ORAL
     Route: 048
     Dates: start: 20090617, end: 20100310
  2. EXJADE [Suspect]
     Indication: IRON OVERLOAD
     Dosage: 250 MG DAILY, ORAL
     Route: 048
     Dates: start: 20090617, end: 20100310
  3. RED BLOOD CELLS, CONCENTRATED (RED BLOOD CELLS, CONCENTRATED) [Concomitant]
  4. ACETAMINOPHEN [Concomitant]

REACTIONS (2)
  - HEPATIC ENZYME INCREASED [None]
  - BLOOD BILIRUBIN INCREASED [None]
